FAERS Safety Report 7475694-7 (Version None)
Quarter: 2011Q2

REPORT INFORMATION
  Report Type: 
  Country: None (occurrence: None)
  Receive Date: 20110512
  Receipt Date: 20110509
  Transmission Date: 20111010
  Serious: Yes (Hospitalization, Other)
  Sender: FDA-Public Use
  Company Number: US-ELI_LILLY_AND_COMPANY-US201007007857

PATIENT
  Sex: Male

DRUGS (12)
  1. KLONOPIN [Concomitant]
     Dosage: 1 MG, BID
     Route: 048
  2. NOVOLOG [Concomitant]
  3. GLUCOPHAGE [Concomitant]
     Dosage: 500 MG, BID
     Route: 048
  4. LIPITOR [Concomitant]
     Dosage: 40 DF, QD
  5. ZOLOFT [Concomitant]
     Dosage: 10 MG, QD
  6. MYSOLINE [Concomitant]
     Indication: TREMOR
     Dosage: 250 DF, QD
  7. PERCOCET [Concomitant]
     Dosage: UNK, QID
  8. LANTUS [Concomitant]
     Dosage: 25 U, EACH EVENING
     Route: 058
  9. NEURONTIN [Concomitant]
     Dosage: 300 MG, QID
     Route: 048
  10. BYETTA [Suspect]
     Dosage: UNK
     Dates: start: 20070201, end: 20091201
  11. MS CONTIN [Concomitant]
     Dosage: 50 MG, BID
     Route: 048
  12. PROPRANOLOL [Concomitant]
     Dosage: 80 MG, QD

REACTIONS (4)
  - OFF LABEL USE [None]
  - RENAL FAILURE [None]
  - RENAL FAILURE ACUTE [None]
  - PANCREATITIS [None]
